FAERS Safety Report 13074257 (Version 2)
Quarter: 2017Q1

REPORT INFORMATION
  Report Type: Report from Study
  Country: JP (occurrence: JP)
  Receive Date: 20161230
  Receipt Date: 20170327
  Transmission Date: 20170428
  Serious: Yes (Other)
  Sender: FDA-Public Use
  Company Number: JP-ROCHE-1873279

PATIENT
  Age: 16 Year
  Sex: Female

DRUGS (13)
  1. POLARAMINE [Concomitant]
     Active Substance: DEXCHLORPHENIRAMINE MALEATE
     Indication: PREMEDICATION
     Route: 048
     Dates: start: 20160331, end: 20160331
  2. PREDONINE [Concomitant]
     Active Substance: PREDNISOLONE
     Dosage: 15-60MG
     Route: 048
     Dates: start: 20160311, end: 20160529
  3. FAMOTIDINE. [Concomitant]
     Active Substance: FAMOTIDINE
     Route: 048
     Dates: end: 20160529
  4. ONEALFA [Concomitant]
     Active Substance: ALFACALCIDOL
     Indication: PROPHYLAXIS
     Route: 048
     Dates: start: 20160419
  5. RITUXIMAB [Suspect]
     Active Substance: RITUXIMAB
     Indication: NEPHROTIC SYNDROME
     Dosage: INFUSION RATE OF 25 MG/H AND THE MAXIMUM RATE OF 100 MG/H
     Route: 042
     Dates: start: 20160331, end: 20160331
  6. PREDONINE [Concomitant]
     Active Substance: PREDNISOLONE
     Indication: NEPHROTIC SYNDROME
     Route: 048
     Dates: start: 20160331, end: 20160331
  7. PERSANTIN [Concomitant]
     Active Substance: DIPYRIDAMOLE
     Indication: PROTEINURIA
     Route: 048
  8. BAKTAR [Concomitant]
     Active Substance: SULFAMETHOXAZOLE\TRIMETHOPRIM
     Indication: INFECTION PROPHYLAXIS
     Route: 048
     Dates: start: 20160401
  9. ADALAT CC [Concomitant]
     Active Substance: NIFEDIPINE
     Route: 048
  10. CALONAL [Concomitant]
     Active Substance: ACETAMINOPHEN
     Route: 048
     Dates: start: 20160331, end: 20160331
  11. CICLOSPORIN [Concomitant]
     Active Substance: CYCLOSPORINE
     Indication: NEPHROTIC SYNDROME
     Route: 048
     Dates: start: 20121222, end: 20160530
  12. PREDONINE [Concomitant]
     Active Substance: PREDNISOLONE
     Indication: PREMEDICATION
     Route: 042
     Dates: start: 20160302, end: 20160311
  13. CELLCEPT [Concomitant]
     Active Substance: MYCOPHENOLATE MOFETIL\MYCOPHENOLATE MOFETIL HYDROCHLORIDE
     Indication: NEPHROTIC SYNDROME
     Route: 048
     Dates: start: 20160317

REACTIONS (7)
  - Abdominal pain [Recovered/Resolved]
  - Oropharyngeal discomfort [Recovered/Resolved]
  - Blood pressure increased [Recovered/Resolved]
  - Headache [Recovered/Resolved]
  - Erythema [Recovered/Resolved]
  - Dyspnoea [Recovered/Resolved]
  - Exophthalmos [Recovering/Resolving]

NARRATIVE: CASE EVENT DATE: 20160331
